FAERS Safety Report 8280316-1 (Version None)
Quarter: 2012Q2

REPORT INFORMATION
  Report Type: 
  Country: None (occurrence: None)
  Receive Date: 20120412
  Receipt Date: 20120213
  Transmission Date: 20120825
  Serious: No
  Sender: FDA-Public Use
  Company Number: US-ASTRAZENECA-2012SE07061

PATIENT
  Sex: Female

DRUGS (8)
  1. PREVACID [Suspect]
     Route: 065
  2. HALDOL [Concomitant]
  3. NEXIUM [Suspect]
     Indication: GASTROINTESTINAL ULCER HAEMORRHAGE
     Route: 048
  4. SEROQUEL XR [Suspect]
     Route: 048
  5. HALVOLMENT [Concomitant]
  6. CLOZARIL [Concomitant]
  7. CLOZIVIL AND RT [Concomitant]
  8. NEXIUM [Suspect]
     Indication: GASTROOESOPHAGEAL REFLUX DISEASE
     Route: 048

REACTIONS (3)
  - GASTROOESOPHAGEAL REFLUX DISEASE [None]
  - ERUCTATION [None]
  - CHEST PAIN [None]
